FAERS Safety Report 23341675 (Version 1)
Quarter: 2023Q4

REPORT INFORMATION
  Report Type: Spontaneous
  Country: TW (occurrence: TW)
  Receive Date: 20231227
  Receipt Date: 20231227
  Transmission Date: 20240110
  Serious: Yes (Other)
  Sender: FDA-Public Use
  Company Number: TW-002147023-NVSC2023TW271904

PATIENT
  Sex: Male

DRUGS (1)
  1. CAPMATINIB [Suspect]
     Active Substance: CAPMATINIB
     Indication: Lung carcinoma cell type unspecified recurrent
     Dosage: 400 MG, BID
     Route: 048
     Dates: start: 20231101

REACTIONS (2)
  - Pulmonary embolism [Unknown]
  - Gene mutation [Unknown]
